FAERS Safety Report 12374490 (Version 1)
Quarter: 2016Q2

REPORT INFORMATION
  Report Type: Spontaneous
  Country: US (occurrence: US)
  Receive Date: 20160517
  Receipt Date: 20160517
  Transmission Date: 20160815
  Serious: No
  Sender: FDA-Public Use
  Company Number: US-TORRENT-00001183

PATIENT
  Sex: Female

DRUGS (1)
  1. DULOXETIN HYDROCHLORIDE CAPSULE, DELAYED RELEASE [Suspect]
     Active Substance: DULOXETINE HYDROCHLORIDE
     Indication: PRODUCT USED FOR UNKNOWN INDICATION

REACTIONS (3)
  - Oesophageal pain [Unknown]
  - Wrong technique in product usage process [Unknown]
  - Drug withdrawal syndrome [Unknown]
